FAERS Safety Report 5081378-5 (Version None)
Quarter: 2006Q3

REPORT INFORMATION
  Report Type: 
  Country: None (occurrence: None)
  Receive Date: 20060814
  Receipt Date: 20060814
  Transmission Date: 20061208
  Serious: Yes (Other)
  Sender: FDA-Public Use
  Company Number: None

PATIENT
  Age: 57 Year
  Sex: Male
  Weight: 83.0083 kg

DRUGS (11)
  1. HCD 100MG + APAP 100MG SR CAP-FRANKS PHARMACY [Suspect]
     Indication: SPINAL FRACTURE
     Dosage: 1 TABLET 3 TIMES DAILY ORALLY
     Route: 048
     Dates: start: 20020601
  2. PRILOSEC [Concomitant]
  3. MULTI-VITAMIN [Concomitant]
  4. LAXATIVES [Concomitant]
  5. EFFEXOR [Concomitant]
  6. ATENOLOL [Concomitant]
  7. TERAZOSIN [Concomitant]
  8. NEURONTIN [Concomitant]
  9. VICODIN [Concomitant]
  10. ALPRAZOLAM [Concomitant]
  11. CLONIDINE [Concomitant]

REACTIONS (2)
  - PAIN [None]
  - PHARMACEUTICAL PRODUCT COMPLAINT [None]
